FAERS Safety Report 11724498 (Version 1)
Quarter: 2015Q4

REPORT INFORMATION
  Report Type: Report from Study
  Country: US (occurrence: US)
  Receive Date: 20151111
  Receipt Date: 20151111
  Transmission Date: 20160304
  Serious: No
  Sender: FDA-Public Use
  Company Number: US-AMGEN-USASL2015118675

PATIENT
  Sex: Female

DRUGS (1)
  1. ENBREL [Suspect]
     Active Substance: ETANERCEPT
     Indication: PRODUCT USED FOR UNKNOWN INDICATION
     Dosage: 50MG ONCE WEEK
     Route: 065
     Dates: start: 20150930

REACTIONS (2)
  - Rash papular [Unknown]
  - Pruritus [Unknown]

NARRATIVE: CASE EVENT DATE: 20151108
